FAERS Safety Report 25832398 (Version 1)
Quarter: 2025Q3

REPORT INFORMATION
  Report Type: Spontaneous
  Country: US (occurrence: US)
  Receive Date: 20250922
  Receipt Date: 20250922
  Transmission Date: 20251020
  Serious: No
  Sender: PURDUE
  Company Number: US-PURDUE PHARMA-USA-2025-0320727

PATIENT

DRUGS (1)
  1. OXYCODONE HYDROCHLORIDE [Suspect]
     Active Substance: OXYCODONE HYDROCHLORIDE
     Indication: Pain
     Route: 048

REACTIONS (1)
  - Inadequate analgesia [Unknown]
